FAERS Safety Report 19055986 (Version 1)
Quarter: 2021Q1

REPORT INFORMATION
  Report Type: Spontaneous
  Country: FR (occurrence: FR)
  Receive Date: 20210325
  Receipt Date: 20210325
  Transmission Date: 20210420
  Serious: Yes (Other)
  Sender: FDA-Public Use
  Company Number: FR-TEVA-2021-FR-1887248

PATIENT
  Sex: Female

DRUGS (12)
  1. DAFLON 500 MG [Concomitant]
     Active Substance: DIOSMIN\HESPERIDIN
     Dosage: 2 DOSAGE FORMS DAILY;
  2. IMOVANE [Concomitant]
     Active Substance: ZOPICLONE
     Dosage: 1 DOSAGE FORMS DAILY; AT BEDTIME
  3. FENOFIBRATE 160 MG [Concomitant]
     Active Substance: FENOFIBRATE
     Dosage: 1 DOSAGE FORMS DAILY; IN THE EVENING
  4. KEPPRA [Concomitant]
     Active Substance: LEVETIRACETAM
     Dosage: 2 DOSAGE FORMS DAILY; 1 DF IN THE MORNING AND 1 DF IN THE EVENING
  5. SPAGULAX [Concomitant]
     Active Substance: PLANTAGO OVATA SEED
     Dosage: 2 DOSAGE FORMS DAILY;
  6. PINAVERIEUM 100 MG [Concomitant]
     Dosage: 2 DOSAGE FORMS DAILY;
  7. IRBESARTANT HYDROCHLOROTHIAZIDE TEVA 150 MG/12.5 MG [Suspect]
     Active Substance: HYDROCHLOROTHIAZIDE\IRBESARTAN
     Dosage: 1 DOSAGE FORMS DAILY;
     Route: 065
  8. IRBESARTAN HYDROCHLOROTHIAZIDE EVOLUGEN PHARMA 150 MG/12.5 MG [Suspect]
     Active Substance: HYDROCHLOROTHIAZIDE\IRBESARTAN
     Dosage: 1 DOSAGE FORMS DAILY;
     Route: 065
  9. EFFERALGAN [Concomitant]
     Active Substance: ACETAMINOPHEN
     Dosage: 1 TO 3 DF DAILY
  10. AMLODIPINE [Concomitant]
     Active Substance: AMLODIPINE BESYLATE
     Dosage: 1 DOSAGE FORMS DAILY;
     Route: 065
  11. PAROXETINE. [Concomitant]
     Active Substance: PAROXETINE
     Dosage: 2 DOSAGE FORMS DAILY;
  12. LORAZEPAM 1MG [Concomitant]
     Active Substance: LORAZEPAM
     Dosage: 2 DOSAGE FORMS DAILY;

REACTIONS (18)
  - Eye pain [Unknown]
  - Alcohol use [Unknown]
  - Hot flush [Unknown]
  - Chest pain [Unknown]
  - Dry mouth [Unknown]
  - Diabetes mellitus [Unknown]
  - Asthenopia [Unknown]
  - Headache [Unknown]
  - Tinnitus [Unknown]
  - Dizziness [Unknown]
  - Myalgia [Unknown]
  - Muscle spasms [Unknown]
  - Dyspnoea [Unknown]
  - Malaise [Unknown]
  - Hypertension [Unknown]
  - Fatigue [Unknown]
  - Renal disorder [Unknown]
  - Micturition urgency [Unknown]
